FAERS Safety Report 5140227-7 (Version None)
Quarter: 2006Q4

REPORT INFORMATION
  Report Type: 
  Country: None (occurrence: None)
  Receive Date: 20061031
  Receipt Date: 20061020
  Transmission Date: 20070319
  Serious: Yes (Hospitalization)
  Sender: FDA-Public Use
  Company Number: US-JNJFOC-20061005353

PATIENT
  Sex: Female

DRUGS (4)
  1. LEVAQUIN [Suspect]
     Indication: BRONCHITIS
     Route: 048
     Dates: start: 20061016, end: 20061017
  2. TUSSIONEX [Concomitant]
     Route: 065
  3. ALLEGRA-D 12 HOUR [Concomitant]
     Route: 065
  4. NASONEX [Concomitant]
     Route: 065

REACTIONS (6)
  - CONVERSION DISORDER [None]
  - DIZZINESS [None]
  - DRUG SCREEN POSITIVE [None]
  - GUILLAIN-BARRE SYNDROME [None]
  - MOBILITY DECREASED [None]
  - NAUSEA [None]
